FAERS Safety Report 20209234 (Version 1)
Quarter: 2021Q4

REPORT INFORMATION
  Report Type: Other
  Country: CN (occurrence: None)
  Receive Date: 20211220
  Receipt Date: 20211220
  Transmission Date: 20220303
  Serious: Yes (Other)
  Sender: FDA-Public Use
  Company Number: CN-ROCHE-2982234

PATIENT

DRUGS (6)
  1. RITUXIMAB [Suspect]
     Active Substance: RITUXIMAB
     Indication: Diffuse large B-cell lymphoma
     Route: 065
  2. ETOPOSIDE [Suspect]
     Active Substance: ETOPOSIDE
     Indication: Diffuse large B-cell lymphoma
     Route: 065
  3. PREDNISONE [Suspect]
     Active Substance: PREDNISONE
     Indication: Diffuse large B-cell lymphoma
     Route: 065
  4. VINCRISTINE [Suspect]
     Active Substance: VINCRISTINE
     Indication: Diffuse large B-cell lymphoma
     Route: 065
  5. CYCLOPHOSPHAMIDE [Suspect]
     Active Substance: CYCLOPHOSPHAMIDE
     Indication: Diffuse large B-cell lymphoma
     Route: 065
  6. DOXORUBICIN [Suspect]
     Active Substance: DOXORUBICIN
     Indication: Diffuse large B-cell lymphoma
     Route: 065

REACTIONS (15)
  - Febrile neutropenia [Unknown]
  - Pneumonia [Unknown]
  - Fungal infection [Unknown]
  - Pneumocystis jirovecii pneumonia [Unknown]
  - Bacterial infection [Unknown]
  - Anal infection [Unknown]
  - Infection [Unknown]
  - Sepsis [Unknown]
  - Mycobacterial infection [Unknown]
  - Enteritis infectious [Unknown]
  - Cytomegalovirus chorioretinitis [Unknown]
  - Herpes zoster [Unknown]
  - Encephalitis [Unknown]
  - Neutrophil count decreased [Unknown]
  - Neutropenia [Unknown]
